FAERS Safety Report 9707601 (Version 1)
Quarter: 2013Q4

REPORT INFORMATION
  Report Type: Spontaneous
  Country: US (occurrence: None)
  Receive Date: 20131122
  Receipt Date: 20131122
  Transmission Date: 20140711
  Serious: Yes (Life-Threatening, Hospitalization, Other)
  Sender: FDA-Public Use
  Company Number: None

PATIENT
  Age: 10 Year
  Sex: Female
  Weight: 29.03 kg

DRUGS (1)
  1. NORDITROPIN FLEXPRO [Suspect]
     Indication: BODY HEIGHT BELOW NORMAL
     Dosage: 1.4 MG ONCE DAILY GIVEN  INTO/UNDER SKIN
     Dates: start: 20130906, end: 20131112

REACTIONS (5)
  - Headache [None]
  - Diplopia [None]
  - Vomiting [None]
  - Pharyngitis streptococcal [None]
  - Benign intracranial hypertension [None]
